FAERS Safety Report 15409577 (Version 10)
Quarter: 2018Q4

REPORT INFORMATION
  Report Type: Report from Study
  Country: US (occurrence: US)
  Receive Date: 20180920
  Receipt Date: 20181218
  Transmission Date: 20190204
  Serious: Yes (Other)
  Sender: FDA-Public Use
  Company Number: US-ACTELION-A-NJ2018-178605

PATIENT
  Age: 61 Year
  Sex: Female
  Weight: 97.51 kg

DRUGS (3)
  1. VELETRI [Suspect]
     Active Substance: EPOPROSTENOL
     Indication: PULMONARY ARTERIAL HYPERTENSION
     Dosage: 10.5 NG/KG, PER MIN
     Route: 042
  2. OPSUMIT [Suspect]
     Active Substance: MACITENTAN
     Indication: PULMONARY ARTERIAL HYPERTENSION
     Dosage: 10 MG, QD
     Route: 048
  3. VELETRI [Suspect]
     Active Substance: EPOPROSTENOL
     Dosage: 8 NG/KG, PER MIN
     Route: 042

REACTIONS (16)
  - Wound secretion [Unknown]
  - Catheter site erythema [Unknown]
  - Catheter site urticaria [Unknown]
  - Vomiting [Recovered/Resolved]
  - Cough [Unknown]
  - Discharge [Unknown]
  - Rash [Unknown]
  - Diarrhoea [Unknown]
  - Catheter site rash [Unknown]
  - Dyspnoea [Unknown]
  - Catheter site vesicles [Unknown]
  - Device dislocation [Unknown]
  - Dyspnoea exertional [Unknown]
  - Nausea [Unknown]
  - Chills [Unknown]
  - Vascular device infection [Unknown]

NARRATIVE: CASE EVENT DATE: 20180911
